FAERS Safety Report 17866073 (Version 1)
Quarter: 2020Q2

REPORT INFORMATION
  Report Type: Spontaneous
  Country: US (occurrence: US)
  Receive Date: 20200605
  Receipt Date: 20200605
  Transmission Date: 20200714
  Serious: Yes (Other)
  Sender: FDA-Public Use
  Company Number: None

PATIENT
  Age: 77 Year
  Sex: Female
  Weight: 75 kg

DRUGS (2)
  1. PROPOFOL. [Suspect]
     Active Substance: PROPOFOL
     Indication: SEDATION
     Dosage: ?          OTHER FREQUENCY:50-75MCG/KG/MIN;?
     Route: 041
     Dates: start: 20200531
  2. REMDESIVIR. [Suspect]
     Active Substance: REMDESIVIR
     Indication: COVID-19
     Route: 040
     Dates: start: 20200529, end: 20200602

REACTIONS (2)
  - Heart rate decreased [None]
  - Respiratory depression [None]

NARRATIVE: CASE EVENT DATE: 20200530
